FAERS Safety Report 12713044 (Version 5)
Quarter: 2019Q1

REPORT INFORMATION
  Report Type: Report from Study
  Country: None (occurrence: US)
  Receive Date: 20160902
  Receipt Date: 20190219
  Transmission Date: 20190417
  Serious: Yes (Hospitalization, Other)
  Sender: FDA-Public Use
  Company Number: US-ABBVIE-16K-163-1712338-00

PATIENT
  Age: 50 Year
  Sex: Female

DRUGS (10)
  1. BENTYL [Concomitant]
     Active Substance: DICYCLOMINE HYDROCHLORIDE
     Indication: CROHN^S DISEASE
  2. HUMIRA [Suspect]
     Active Substance: ADALIMUMAB
     Indication: CROHN^S DISEASE
     Route: 058
     Dates: end: 2018
  3. HUMIRA [Suspect]
     Active Substance: ADALIMUMAB
     Indication: CROHN^S DISEASE
     Route: 058
     Dates: start: 201409, end: 201512
  4. HUMIRA [Suspect]
     Active Substance: ADALIMUMAB
     Indication: RHEUMATOID ARTHRITIS
     Route: 058
     Dates: start: 20181204
  5. LEXAPRO [Concomitant]
     Active Substance: ESCITALOPRAM OXALATE
     Indication: ANXIETY
  6. PROBIOTIC [Concomitant]
     Active Substance: PROBIOTICS NOS
     Indication: PRODUCT USED FOR UNKNOWN INDICATION
  7. HUMIRA [Suspect]
     Active Substance: ADALIMUMAB
     Route: 058
     Dates: start: 201603, end: 201604
  8. HUMIRA [Suspect]
     Active Substance: ADALIMUMAB
     Route: 058
     Dates: start: 201604, end: 2016
  9. HUMIRA [Suspect]
     Active Substance: ADALIMUMAB
     Indication: RHEUMATOID ARTHRITIS
     Route: 058
     Dates: start: 201512, end: 201603
  10. ATENOLOL. [Concomitant]
     Active Substance: ATENOLOL
     Indication: HYPERTENSION

REACTIONS (25)
  - Kidney infection [Unknown]
  - Chills [Recovering/Resolving]
  - Sinusitis [Recovered/Resolved]
  - Vomiting [Not Recovered/Not Resolved]
  - Joint range of motion decreased [Not Recovered/Not Resolved]
  - Muscle spasms [Unknown]
  - Dehydration [Unknown]
  - Gastrooesophageal reflux disease [Unknown]
  - Crohn^s disease [Unknown]
  - Injection site pruritus [Not Recovered/Not Resolved]
  - Nausea [Not Recovered/Not Resolved]
  - Blood lactic acid increased [Unknown]
  - Nephrolithiasis [Recovered/Resolved]
  - Small intestinal obstruction [Recovered/Resolved]
  - Clostridium difficile infection [Not Recovered/Not Resolved]
  - Pain in extremity [Unknown]
  - Nephrolithiasis [Unknown]
  - Cholecystitis [Unknown]
  - Blood electrolytes decreased [Unknown]
  - Peripheral swelling [Not Recovered/Not Resolved]
  - Gastroenteritis viral [Recovering/Resolving]
  - Frequent bowel movements [Unknown]
  - Abdominal distension [Unknown]
  - Rheumatoid arthritis [Unknown]
  - Tenderness [Unknown]

NARRATIVE: CASE EVENT DATE: 201512
